FAERS Safety Report 25302734 (Version 1)
Quarter: 2025Q2

REPORT INFORMATION
  Report Type: Report from Study
  Country: CO (occurrence: CO)
  Receive Date: 20250512
  Receipt Date: 20250512
  Transmission Date: 20250717
  Serious: Yes (Hospitalization)
  Sender: ALEXION PHARMACEUTICALS
  Company Number: CO-AstraZeneca-CH-00848074A

PATIENT
  Age: 84 Year
  Weight: 58 kg

DRUGS (1)
  1. ACALABRUTINIB [Suspect]
     Active Substance: ACALABRUTINIB
     Indication: Chronic lymphocytic leukaemia
     Dosage: 100 MILLIGRAM, Q12H

REACTIONS (4)
  - White blood cell count increased [Recovering/Resolving]
  - Abdominal pain upper [Recovering/Resolving]
  - Chest discomfort [Unknown]
  - Back pain [Unknown]
